FAERS Safety Report 25312213 (Version 1)
Quarter: 2025Q2

REPORT INFORMATION
  Report Type: Spontaneous
  Country: US (occurrence: US)
  Receive Date: 20250510
  Receipt Date: 20250510
  Transmission Date: 20250717
  Serious: Yes (Other)
  Sender: NOVO NORDISK
  Company Number: US-NOVOPROD-1418158

PATIENT
  Sex: Female

DRUGS (4)
  1. OZEMPIC [Suspect]
     Active Substance: SEMAGLUTIDE
     Indication: Glycosylated haemoglobin increased
     Dosage: 1 MG QW
     Dates: start: 2025
  2. OZEMPIC [Suspect]
     Active Substance: SEMAGLUTIDE
     Indication: Glucose tolerance impaired
     Dates: start: 202205
  3. OZEMPIC [Suspect]
     Active Substance: SEMAGLUTIDE
     Indication: Glycosylated haemoglobin increased
  4. OZEMPIC [Suspect]
     Active Substance: SEMAGLUTIDE
     Indication: Glucose tolerance impaired
     Dosage: 2 MG, QW
     Dates: end: 2025

REACTIONS (6)
  - Fibromyalgia [Unknown]
  - Polycystic ovarian syndrome [Unknown]
  - Decreased appetite [Unknown]
  - Nausea [Unknown]
  - Metabolic dysfunction-associated liver disease [Unknown]
  - Product use in unapproved indication [Unknown]

NARRATIVE: CASE EVENT DATE: 20220501
